FAERS Safety Report 7723236-0 (Version None)
Quarter: 2011Q3

REPORT INFORMATION
  Report Type: 
  Country: None (occurrence: None)
  Receive Date: 20110901
  Receipt Date: 20110819
  Transmission Date: 20111222
  Serious: No
  Sender: FDA-Public Use
  Company Number: US-B.I. PHARMACEUTICALS,INC./RIDGEFIELD-2011-BP-20461BP

PATIENT
  Age: 84 Year
  Sex: Female

DRUGS (5)
  1. LANOXIN [Concomitant]
     Indication: ATRIAL FIBRILLATION
     Route: 048
  2. ATACAND [Concomitant]
     Indication: HYPERTENSION
     Dosage: 32 MG
     Route: 048
  3. BYSTOLIC [Concomitant]
     Indication: HYPERTENSION
     Dosage: 20 MG
     Route: 048
  4. LEXAPRO [Concomitant]
     Indication: DEPRESSION
     Dosage: 10 MG
     Route: 048
  5. PRADAXA [Suspect]
     Indication: ATRIAL FIBRILLATION
     Dosage: 300 MG
     Route: 048
     Dates: start: 20110711

REACTIONS (3)
  - OESOPHAGEAL PAIN [None]
  - DYSPEPSIA [None]
  - ABDOMINAL DISCOMFORT [None]
